FAERS Safety Report 6604366-3 (Version None)
Quarter: 2010Q1

REPORT INFORMATION
  Report Type: 
  Country: None (occurrence: None)
  Receive Date: 20100226
  Receipt Date: 20091020
  Transmission Date: 20100710
  Serious: Yes (Other)
  Sender: FDA-Public Use
  Company Number: A0805722A

PATIENT
  Age: 10 Year
  Sex: Female
  Weight: 34.8 kg

DRUGS (2)
  1. LAMICTAL CD [Suspect]
     Indication: DRUG USE FOR UNKNOWN INDICATION
     Dosage: 25MG AT NIGHT
     Route: 048
     Dates: start: 20090729, end: 20090817
  2. CELEXA [Suspect]
     Indication: DRUG USE FOR UNKNOWN INDICATION
     Dosage: 5MG IN THE MORNING
     Route: 048
     Dates: start: 20090813, end: 20090817

REACTIONS (2)
  - CONVULSION [None]
  - SUICIDAL IDEATION [None]
